FAERS Safety Report 4808207-6 (Version None)
Quarter: 2005Q4

REPORT INFORMATION
  Report Type: 
  Country: None (occurrence: None)
  Receive Date: 20051025
  Receipt Date: 20051013
  Transmission Date: 20060501
  Serious: Yes (Life-Threatening)
  Sender: FDA-Public Use
  Company Number: JP-SOLVAY-00205003241

PATIENT
  Age: 73 Year
  Sex: Male

DRUGS (2)
  1. COVERSYL [Suspect]
     Indication: HYPERTENSION
     Dosage: DAILY DOSE: 4 MILLIGRAM(S)
     Route: 048
     Dates: start: 20050514, end: 20050930
  2. PANALDINE [Suspect]
     Indication: CEREBRAL INFARCTION
     Dosage: DAILY DOSE: 200 MILLIGRAM(S)
     Route: 048
     Dates: start: 20050501, end: 20050101

REACTIONS (1)
  - CEREBRAL HAEMORRHAGE [None]
